FAERS Safety Report 14342110 (Version 3)
Quarter: 2018Q2

REPORT INFORMATION
  Report Type: Report from Study
  Country: CA (occurrence: CA)
  Receive Date: 20180102
  Receipt Date: 20180410
  Transmission Date: 20180711
  Serious: Yes (Other)
  Sender: FDA-Public Use
  Company Number: CA-GLAXOSMITHKLINE-CA2017GSK201150

PATIENT
  Age: 44 Year
  Sex: Male

DRUGS (14)
  1. DICLOFENAC [Suspect]
     Active Substance: DICLOFENAC
     Indication: PRODUCT USED FOR UNKNOWN INDICATION
  2. METHOTREXATE. [Suspect]
     Active Substance: METHOTREXATE
     Indication: PRODUCT USED FOR UNKNOWN INDICATION
     Dosage: UNK
  3. BACLOFEN. [Suspect]
     Active Substance: BACLOFEN
     Indication: PRODUCT USED FOR UNKNOWN INDICATION
     Dosage: UNK
  4. METHYLPREDNISOLONE. [Concomitant]
     Active Substance: METHYLPREDNISOLONE
  5. COSENTYX [Suspect]
     Active Substance: SECUKINUMAB
     Indication: PSORIATIC ARTHROPATHY
     Dosage: UNK
     Route: 058
     Dates: start: 20180210
  6. ROSUVASTATIN. [Suspect]
     Active Substance: ROSUVASTATIN
     Indication: PRODUCT USED FOR UNKNOWN INDICATION
     Dosage: UNK
     Route: 065
  7. COSENTYX [Suspect]
     Active Substance: SECUKINUMAB
     Indication: PSORIASIS
     Dosage: 150 MG, QMO
     Route: 058
     Dates: start: 20180310
  8. NORVASC [Concomitant]
     Active Substance: AMLODIPINE BESYLATE
  9. CLOBETASOL [Concomitant]
     Active Substance: CLOBETASOL
  10. IRBESARTAN. [Suspect]
     Active Substance: IRBESARTAN
     Indication: PRODUCT USED FOR UNKNOWN INDICATION
     Dosage: UNK
     Route: 065
  11. DETROL [Concomitant]
     Active Substance: TOLTERODINE TARTRATE
  12. NAPROXEN. [Concomitant]
     Active Substance: NAPROXEN
  13. CANNABIS [Concomitant]
     Active Substance: CANNABIS SATIVA SUBSP. INDICA TOP
  14. MELOXICAM. [Concomitant]
     Active Substance: MELOXICAM

REACTIONS (10)
  - Prostatic specific antigen increased [Recovering/Resolving]
  - Joint swelling [Unknown]
  - Lipoma [Unknown]
  - Inflammatory marker increased [Unknown]
  - Blood pressure increased [Unknown]
  - Drug ineffective [Unknown]
  - Psoriasis [Unknown]
  - Musculoskeletal discomfort [Unknown]
  - Arthralgia [Unknown]
  - Seronegative arthritis [Unknown]

NARRATIVE: CASE EVENT DATE: 201709
